FAERS Safety Report 17433617 (Version 5)
Quarter: 2022Q4

REPORT INFORMATION
  Report Type: Report from Study
  Country: FR (occurrence: FR)
  Receive Date: 20200219
  Receipt Date: 20221111
  Transmission Date: 20230112
  Serious: Yes (Life-Threatening)
  Sender: FDA-Public Use
  Company Number: FR-GLAXOSMITHKLINE-FR2020GSK024104

PATIENT

DRUGS (90)
  1. BEVACIZUMAB [Suspect]
     Active Substance: BEVACIZUMAB
     Indication: Ovarian cancer
     Dosage: UNK
     Route: 048
  2. CARBOPLATIN [Suspect]
     Active Substance: CARBOPLATIN
     Indication: Ovarian cancer
     Dosage: UNK
     Route: 048
  3. DOSTARLIMAB [Suspect]
     Active Substance: DOSTARLIMAB
     Indication: Ovarian cancer
     Dosage: UNK
     Route: 048
  4. DOSTARLIMAB [Suspect]
     Active Substance: DOSTARLIMAB
     Indication: Ovarian cancer
     Dosage: UNK
     Route: 048
  5. NIRAPARIB [Suspect]
     Active Substance: NIRAPARIB
     Indication: Ovarian cancer
     Dosage: UNK
     Route: 048
  6. PACLITAXEL [Suspect]
     Active Substance: PACLITAXEL
     Indication: Ovarian cancer
     Dosage: UNK
     Route: 048
  7. PLACEBO [Suspect]
     Active Substance: UNSPECIFIED INGREDIENT
     Indication: Ovarian cancer
     Dosage: UNK
     Route: 048
  8. PLACEBO [Suspect]
     Active Substance: UNSPECIFIED INGREDIENT
     Indication: Ovarian cancer
     Dosage: UNK
     Route: 048
  9. BEVACIZUMAB [Suspect]
     Active Substance: BEVACIZUMAB
     Dosage: 300 MG
     Route: 048
     Dates: end: 20200205
  10. CARBOPLATIN [Suspect]
     Active Substance: CARBOPLATIN
     Dosage: 300 MG
     Route: 048
     Dates: end: 20200205
  11. DOSTARLIMAB [Suspect]
     Active Substance: DOSTARLIMAB
     Dosage: 300 MG
     Route: 048
     Dates: end: 20200205
  12. DOSTARLIMAB [Suspect]
     Active Substance: DOSTARLIMAB
     Dosage: 300 MG
     Route: 048
     Dates: end: 20200205
  13. NIRAPARIB [Suspect]
     Active Substance: NIRAPARIB
     Dosage: 300 MG
     Route: 048
     Dates: end: 20200205
  14. PACLITAXEL [Suspect]
     Active Substance: PACLITAXEL
     Dosage: 300 MG
     Route: 048
     Dates: end: 20200205
  15. PLACEBO [Suspect]
     Active Substance: UNSPECIFIED INGREDIENT
     Dosage: 300 MG
     Route: 048
     Dates: end: 20200205
  16. PLACEBO [Suspect]
     Active Substance: UNSPECIFIED INGREDIENT
     Dosage: 300 MG
     Route: 048
     Dates: end: 20200205
  17. BEVACIZUMAB [Suspect]
     Active Substance: BEVACIZUMAB
     Dosage: UNK
     Route: 048
     Dates: start: 20200206
  18. CARBOPLATIN [Suspect]
     Active Substance: CARBOPLATIN
     Dosage: UNK
     Route: 048
     Dates: start: 20200206
  19. DOSTARLIMAB [Suspect]
     Active Substance: DOSTARLIMAB
     Dosage: UNK
     Route: 048
     Dates: start: 20200206
  20. DOSTARLIMAB [Suspect]
     Active Substance: DOSTARLIMAB
     Dosage: UNK
     Route: 048
     Dates: start: 20200206
  21. NIRAPARIB [Suspect]
     Active Substance: NIRAPARIB
     Dosage: UNK
     Route: 048
     Dates: start: 20200206
  22. PACLITAXEL [Suspect]
     Active Substance: PACLITAXEL
     Dosage: UNK
     Route: 048
     Dates: start: 20200206
  23. PLACEBO [Suspect]
     Active Substance: UNSPECIFIED INGREDIENT
     Dosage: UNK
     Route: 048
     Dates: start: 20200206
  24. PLACEBO [Suspect]
     Active Substance: UNSPECIFIED INGREDIENT
     Dosage: UNK
     Route: 048
     Dates: start: 20200206
  25. BEVACIZUMAB [Suspect]
     Active Substance: BEVACIZUMAB
     Indication: Ovarian cancer
     Dosage: 500 MG
     Route: 042
     Dates: start: 20190807, end: 20190807
  26. CARBOPLATIN [Suspect]
     Active Substance: CARBOPLATIN
     Indication: Ovarian cancer
     Dosage: 500 MG
     Route: 042
     Dates: start: 20190807, end: 20190807
  27. DOSTARLIMAB [Suspect]
     Active Substance: DOSTARLIMAB
     Indication: Ovarian cancer
     Dosage: 500 MG
     Route: 042
     Dates: start: 20190807, end: 20190807
  28. DOSTARLIMAB [Suspect]
     Active Substance: DOSTARLIMAB
     Indication: Ovarian cancer
     Dosage: 500 MG
     Route: 042
     Dates: start: 20190807, end: 20190807
  29. NIRAPARIB [Suspect]
     Active Substance: NIRAPARIB
     Indication: Ovarian cancer
     Dosage: 500 MG
     Route: 042
     Dates: start: 20190807, end: 20190807
  30. PACLITAXEL [Suspect]
     Active Substance: PACLITAXEL
     Indication: Ovarian cancer
     Dosage: 500 MG
     Route: 042
     Dates: start: 20190807, end: 20190807
  31. PLACEBO [Suspect]
     Active Substance: UNSPECIFIED INGREDIENT
     Indication: Ovarian cancer
     Dosage: 500 MG
     Route: 042
     Dates: start: 20190807, end: 20190807
  32. PLACEBO [Suspect]
     Active Substance: UNSPECIFIED INGREDIENT
     Indication: Ovarian cancer
     Dosage: 500 MG
     Route: 042
     Dates: start: 20190807, end: 20190807
  33. BEVACIZUMAB [Suspect]
     Active Substance: BEVACIZUMAB
     Dosage: 1000 MG
     Route: 042
     Dates: start: 20191226, end: 20191226
  34. CARBOPLATIN [Suspect]
     Active Substance: CARBOPLATIN
     Dosage: 1000 MG
     Route: 042
     Dates: start: 20191226, end: 20191226
  35. DOSTARLIMAB [Suspect]
     Active Substance: DOSTARLIMAB
     Dosage: 1000 MG
     Route: 042
     Dates: start: 20191226, end: 20191226
  36. DOSTARLIMAB [Suspect]
     Active Substance: DOSTARLIMAB
     Dosage: 1000 MG
     Route: 042
     Dates: start: 20191226, end: 20191226
  37. NIRAPARIB [Suspect]
     Active Substance: NIRAPARIB
     Dosage: 1000 MG
     Route: 042
     Dates: start: 20191226, end: 20191226
  38. PACLITAXEL [Suspect]
     Active Substance: PACLITAXEL
     Dosage: 1000 MG
     Route: 042
     Dates: start: 20191226, end: 20191226
  39. PLACEBO [Suspect]
     Active Substance: UNSPECIFIED INGREDIENT
     Dosage: 1000 MG
     Route: 042
     Dates: start: 20191226, end: 20191226
  40. PLACEBO [Suspect]
     Active Substance: UNSPECIFIED INGREDIENT
     Dosage: 1000 MG
     Route: 042
     Dates: start: 20191226, end: 20191226
  41. BEVACIZUMAB [Suspect]
     Active Substance: BEVACIZUMAB
     Indication: Ovarian cancer
     Dosage: 5 AUC
     Route: 042
     Dates: start: 20190717, end: 20190717
  42. CARBOPLATIN [Suspect]
     Active Substance: CARBOPLATIN
     Indication: Ovarian cancer
     Dosage: 5 AUC
     Route: 042
     Dates: start: 20190717, end: 20190717
  43. DOSTARLIMAB [Suspect]
     Active Substance: DOSTARLIMAB
     Indication: Ovarian cancer
     Dosage: 5 AUC
     Route: 042
     Dates: start: 20190717, end: 20190717
  44. DOSTARLIMAB [Suspect]
     Active Substance: DOSTARLIMAB
     Indication: Ovarian cancer
     Dosage: 5 AUC
     Route: 042
     Dates: start: 20190717, end: 20190717
  45. NIRAPARIB [Suspect]
     Active Substance: NIRAPARIB
     Indication: Ovarian cancer
     Dosage: 5 AUC
     Route: 042
     Dates: start: 20190717, end: 20190717
  46. PACLITAXEL [Suspect]
     Active Substance: PACLITAXEL
     Indication: Ovarian cancer
     Dosage: 5 AUC
     Route: 042
     Dates: start: 20190717, end: 20190717
  47. PLACEBO [Suspect]
     Active Substance: UNSPECIFIED INGREDIENT
     Indication: Ovarian cancer
     Dosage: 5 AUC
     Route: 042
     Dates: start: 20190717, end: 20190717
  48. PLACEBO [Suspect]
     Active Substance: UNSPECIFIED INGREDIENT
     Indication: Ovarian cancer
     Dosage: 5 AUC
     Route: 042
     Dates: start: 20190717, end: 20190717
  49. BEVACIZUMAB [Suspect]
     Active Substance: BEVACIZUMAB
     Dosage: 5 AUC
     Route: 042
     Dates: start: 20191204, end: 20191204
  50. CARBOPLATIN [Suspect]
     Active Substance: CARBOPLATIN
     Dosage: 5 AUC
     Route: 042
     Dates: start: 20191204, end: 20191204
  51. DOSTARLIMAB [Suspect]
     Active Substance: DOSTARLIMAB
     Dosage: 5 AUC
     Route: 042
     Dates: start: 20191204, end: 20191204
  52. DOSTARLIMAB [Suspect]
     Active Substance: DOSTARLIMAB
     Dosage: 5 AUC
     Route: 042
     Dates: start: 20191204, end: 20191204
  53. NIRAPARIB [Suspect]
     Active Substance: NIRAPARIB
     Dosage: 5 AUC
     Route: 042
     Dates: start: 20191204, end: 20191204
  54. PACLITAXEL [Suspect]
     Active Substance: PACLITAXEL
     Dosage: 5 AUC
     Route: 042
     Dates: start: 20191204, end: 20191204
  55. PLACEBO [Suspect]
     Active Substance: UNSPECIFIED INGREDIENT
     Dosage: 5 AUC
     Route: 042
     Dates: start: 20191204, end: 20191204
  56. PLACEBO [Suspect]
     Active Substance: UNSPECIFIED INGREDIENT
     Dosage: 5 AUC
     Route: 042
     Dates: start: 20191204, end: 20191204
  57. BEVACIZUMAB [Suspect]
     Active Substance: BEVACIZUMAB
     Indication: Ovarian cancer
     Dosage: 306 MG
     Route: 042
     Dates: start: 20190717, end: 20190717
  58. CARBOPLATIN [Suspect]
     Active Substance: CARBOPLATIN
     Indication: Ovarian cancer
     Dosage: 306 MG
     Route: 042
     Dates: start: 20190717, end: 20190717
  59. DOSTARLIMAB [Suspect]
     Active Substance: DOSTARLIMAB
     Indication: Ovarian cancer
     Dosage: 306 MG
     Route: 042
     Dates: start: 20190717, end: 20190717
  60. DOSTARLIMAB [Suspect]
     Active Substance: DOSTARLIMAB
     Indication: Ovarian cancer
     Dosage: 306 MG
     Route: 042
     Dates: start: 20190717, end: 20190717
  61. NIRAPARIB [Suspect]
     Active Substance: NIRAPARIB
     Indication: Ovarian cancer
     Dosage: 306 MG
     Route: 042
     Dates: start: 20190717, end: 20190717
  62. PACLITAXEL [Suspect]
     Active Substance: PACLITAXEL
     Indication: Ovarian cancer
     Dosage: 306 MG
     Route: 042
     Dates: start: 20190717, end: 20190717
  63. PLACEBO [Suspect]
     Active Substance: UNSPECIFIED INGREDIENT
     Indication: Ovarian cancer
     Dosage: 306 MG
     Route: 042
     Dates: start: 20190717, end: 20190717
  64. PLACEBO [Suspect]
     Active Substance: UNSPECIFIED INGREDIENT
     Indication: Ovarian cancer
     Dosage: 306 MG
     Route: 042
     Dates: start: 20190717, end: 20190717
  65. BEVACIZUMAB [Suspect]
     Active Substance: BEVACIZUMAB
     Dosage: 282 MG
     Route: 042
     Dates: start: 20191204, end: 20191204
  66. CARBOPLATIN [Suspect]
     Active Substance: CARBOPLATIN
     Dosage: 282 MG
     Route: 042
     Dates: start: 20191204, end: 20191204
  67. DOSTARLIMAB [Suspect]
     Active Substance: DOSTARLIMAB
     Dosage: 282 MG
     Route: 042
     Dates: start: 20191204, end: 20191204
  68. DOSTARLIMAB [Suspect]
     Active Substance: DOSTARLIMAB
     Dosage: 282 MG
     Route: 042
     Dates: start: 20191204, end: 20191204
  69. NIRAPARIB [Suspect]
     Active Substance: NIRAPARIB
     Dosage: 282 MG
     Route: 042
     Dates: start: 20191204, end: 20191204
  70. PACLITAXEL [Suspect]
     Active Substance: PACLITAXEL
     Dosage: 282 MG
     Route: 042
     Dates: start: 20191204, end: 20191204
  71. PLACEBO [Suspect]
     Active Substance: UNSPECIFIED INGREDIENT
     Dosage: 282 MG
     Route: 042
     Dates: start: 20191204, end: 20191204
  72. PLACEBO [Suspect]
     Active Substance: UNSPECIFIED INGREDIENT
     Dosage: 282 MG
     Route: 042
     Dates: start: 20191204, end: 20191204
  73. BEVACIZUMAB [Suspect]
     Active Substance: BEVACIZUMAB
     Indication: Ovarian cancer
     Dosage: UNK
     Route: 042
  74. CARBOPLATIN [Suspect]
     Active Substance: CARBOPLATIN
     Indication: Ovarian cancer
     Dosage: UNK
     Route: 042
  75. DOSTARLIMAB [Suspect]
     Active Substance: DOSTARLIMAB
     Indication: Ovarian cancer
     Dosage: UNK
     Route: 042
  76. DOSTARLIMAB [Suspect]
     Active Substance: DOSTARLIMAB
     Indication: Ovarian cancer
     Dosage: UNK
     Route: 042
  77. NIRAPARIB [Suspect]
     Active Substance: NIRAPARIB
     Indication: Ovarian cancer
     Dosage: UNK
     Route: 042
  78. PACLITAXEL [Suspect]
     Active Substance: PACLITAXEL
     Indication: Ovarian cancer
     Dosage: UNK
     Route: 042
  79. PLACEBO [Suspect]
     Active Substance: UNSPECIFIED INGREDIENT
     Indication: Ovarian cancer
     Dosage: UNK
     Route: 042
  80. PLACEBO [Suspect]
     Active Substance: UNSPECIFIED INGREDIENT
     Indication: Ovarian cancer
     Dosage: UNK
     Route: 042
  81. BEVACIZUMAB [Suspect]
     Active Substance: BEVACIZUMAB
     Dosage: 950 MG/KG
     Route: 042
     Dates: start: 20200116, end: 20200116
  82. CARBOPLATIN [Suspect]
     Active Substance: CARBOPLATIN
     Dosage: 950 MG/KG
     Route: 042
     Dates: start: 20200116, end: 20200116
  83. DOSTARLIMAB [Suspect]
     Active Substance: DOSTARLIMAB
     Dosage: 950 MG/KG
     Route: 042
     Dates: start: 20200116, end: 20200116
  84. DOSTARLIMAB [Suspect]
     Active Substance: DOSTARLIMAB
     Dosage: 950 MG/KG
     Route: 042
     Dates: start: 20200116, end: 20200116
  85. NIRAPARIB [Suspect]
     Active Substance: NIRAPARIB
     Dosage: 950 MG/KG
     Route: 042
     Dates: start: 20200116, end: 20200116
  86. PACLITAXEL [Suspect]
     Active Substance: PACLITAXEL
     Dosage: 950 MG/KG
     Route: 042
     Dates: start: 20200116, end: 20200116
  87. PLACEBO [Suspect]
     Active Substance: UNSPECIFIED INGREDIENT
     Dosage: 950 MG/KG
     Route: 042
     Dates: start: 20200116, end: 20200116
  88. PLACEBO [Suspect]
     Active Substance: UNSPECIFIED INGREDIENT
     Dosage: 950 MG/KG
     Route: 042
     Dates: start: 20200116, end: 20200116
  89. CISPLATIN [Concomitant]
     Active Substance: CISPLATIN
     Indication: Ovarian cancer
     Dosage: UNK
     Route: 042
  90. DOCETAXEL [Concomitant]
     Active Substance: DOCETAXEL
     Indication: Ovarian cancer
     Dosage: UNK
     Route: 042

REACTIONS (1)
  - Thrombocytopenia [Recovered/Resolved]

NARRATIVE: CASE EVENT DATE: 20200204
